FAERS Safety Report 7772832-3 (Version None)
Quarter: 2011Q3

REPORT INFORMATION
  Report Type: 
  Country: None (occurrence: None)
  Receive Date: 20110922
  Receipt Date: 20110620
  Transmission Date: 20111222
  Serious: No
  Sender: FDA-Public Use
  Company Number: US-ASTRAZENECA-2011SE37518

PATIENT
  Age: 62 Year
  Sex: Female
  Weight: 95.3 kg

DRUGS (4)
  1. KEPPRA [Concomitant]
  2. AMANTADINE HCL [Concomitant]
     Indication: CARDIAC DISORDER
  3. SEROQUEL [Suspect]
     Indication: DEPRESSION
     Dosage: DAILY
     Route: 048
     Dates: start: 20100801, end: 20110401
  4. PROZAC [Concomitant]
     Indication: DEPRESSION

REACTIONS (3)
  - DEPRESSION [None]
  - HALLUCINATIONS, MIXED [None]
  - DRUG DOSE OMISSION [None]
